FAERS Safety Report 22002460 (Version 11)
Quarter: 2023Q2

REPORT INFORMATION
  Report Type: Report from Study
  Country: CO (occurrence: CO)
  Receive Date: 20230217
  Receipt Date: 20230620
  Transmission Date: 20230722
  Serious: Yes (Other)
  Sender: FDA-Public Use
  Company Number: CO-TAKEDA-2023TUS016897

PATIENT
  Age: 30 Year
  Sex: Female
  Weight: 45 kg

DRUGS (5)
  1. ICATIBANT [Suspect]
     Active Substance: ICATIBANT ACETATE
     Indication: Hereditary angioedema
     Dosage: UNK
     Route: 058
     Dates: start: 20221021
  2. ICATIBANT [Suspect]
     Active Substance: ICATIBANT ACETATE
     Indication: Hereditary angioedema
     Dosage: UNK
     Route: 058
     Dates: start: 20221021
  3. CINRYZE [Suspect]
     Active Substance: HUMAN C1-ESTERASE INHIBITOR
     Indication: Hereditary angioedema
     Dosage: UNK
     Route: 065
  4. CINRYZE [Suspect]
     Active Substance: HUMAN C1-ESTERASE INHIBITOR
     Indication: Hereditary angioedema
     Dosage: UNK
     Route: 065
  5. CINRYZE [Suspect]
     Active Substance: HUMAN C1-ESTERASE INHIBITOR
     Indication: Hereditary angioedema
     Dosage: UNK
     Route: 065

REACTIONS (16)
  - Optic neuritis [Not Recovered/Not Resolved]
  - Hypothermia [Recovering/Resolving]
  - Malaise [Not Recovered/Not Resolved]
  - Oropharyngeal pain [Not Recovered/Not Resolved]
  - Pregnancy [Unknown]
  - Pain [Not Recovered/Not Resolved]
  - Viral infection [Not Recovered/Not Resolved]
  - Discouragement [Not Recovered/Not Resolved]
  - Pigmentation disorder [Recovering/Resolving]
  - Acne [Recovering/Resolving]
  - Panic attack [Unknown]
  - Tachycardia [Recovering/Resolving]
  - Hyperhidrosis [Recovering/Resolving]
  - Amnesia [Recovering/Resolving]
  - Urinary tract infection [Recovering/Resolving]
  - Pyrexia [Recovering/Resolving]

NARRATIVE: CASE EVENT DATE: 20230213
